FAERS Safety Report 12545427 (Version 1)
Quarter: 2016Q3

REPORT INFORMATION
  Report Type: Spontaneous
  Country: FR (occurrence: FR)
  Receive Date: 20160711
  Receipt Date: 20160711
  Transmission Date: 20161109
  Serious: Yes (Death)
  Sender: FDA-Public Use
  Company Number: FR-B.I. PHARMACEUTICALS,INC./RIDGEFIELD-2016-BI-44655FF

PATIENT
  Age: 46 Year
  Sex: Female

DRUGS (9)
  1. TIVICAY [Suspect]
     Active Substance: DOLUTEGRAVIR SODIUM
     Indication: ACQUIRED IMMUNODEFICIENCY SYNDROME
     Dosage: 100 MG
     Route: 048
     Dates: start: 20160314, end: 20160323
  2. LAROXYL [Suspect]
     Active Substance: AMITRIPTYLINE
     Indication: DEPRESSION
     Dosage: 100 MG
     Route: 048
     Dates: start: 201511, end: 20160323
  3. NORVIR [Suspect]
     Active Substance: RITONAVIR
     Indication: ACQUIRED IMMUNODEFICIENCY SYNDROME
     Dosage: 400 MG
     Route: 048
     Dates: start: 20160314, end: 20160323
  4. IMOVANE [Suspect]
     Active Substance: ZOPICLONE
     Indication: INSOMNIA
     Dosage: 7.5 MG
     Route: 048
     Dates: start: 201504, end: 20160323
  5. EFFEXOR [Suspect]
     Active Substance: VENLAFAXINE HYDROCHLORIDE
     Indication: DEPRESSION
     Dosage: 150 MG
     Route: 048
     Dates: start: 201504, end: 20160323
  6. THERALENE [Suspect]
     Active Substance: TRIMEPRAZINE
     Indication: DEPRESSION
     Dosage: STRENGTH: 5 MG
     Route: 048
     Dates: end: 20160323
  7. TERCIAN [Suspect]
     Active Substance: CYAMEMAZINE
     Indication: DEPRESSION
     Route: 048
     Dates: end: 20160323
  8. APTIVUS [Suspect]
     Active Substance: TIPRANAVIR
     Indication: ACQUIRED IMMUNODEFICIENCY SYNDROME
     Dosage: STRENGTH: 250MG
     Route: 048
     Dates: start: 2013, end: 20160323
  9. TRUVADA [Suspect]
     Active Substance: EMTRICITABINE\TENOFOVIR DISOPROXIL FUMARATE
     Indication: ACQUIRED IMMUNODEFICIENCY SYNDROME
     Dosage: STRENGTH: 200 MG/245 MG; DOSE PER APPLICATION: 200 MG /245; DAILY DOSE: 200 MG /245;
     Route: 048
     Dates: start: 20160314, end: 20160323

REACTIONS (2)
  - Depression [Fatal]
  - Completed suicide [Fatal]

NARRATIVE: CASE EVENT DATE: 201603
